FAERS Safety Report 12957246 (Version 1)
Quarter: 2016Q4

REPORT INFORMATION
  Report Type: Spontaneous
  Country: FR (occurrence: FR)
  Receive Date: 20161118
  Receipt Date: 20161118
  Transmission Date: 20170207
  Serious: Yes (Death, Other)
  Sender: FDA-Public Use
  Company Number: FR-BRISTOL-MYERS SQUIBB COMPANY-BMS-2016-095929

PATIENT
  Age: 26 Year
  Sex: Male

DRUGS (1)
  1. YERVOY [Suspect]
     Active Substance: IPILIMUMAB
     Indication: TRANSPLANT DYSFUNCTION
     Dosage: 10 MG/KG, UNK
     Route: 042
     Dates: start: 20160922

REACTIONS (3)
  - Product use issue [Unknown]
  - Graft versus host disease [Fatal]
  - Diarrhoea [Recovering/Resolving]

NARRATIVE: CASE EVENT DATE: 20160922
